FAERS Safety Report 4457361-7 (Version None)
Quarter: 2004Q3

REPORT INFORMATION
  Report Type: 
  Country: None (occurrence: None)
  Receive Date: 20040922
  Receipt Date: 20040913
  Transmission Date: 20050211
  Serious: Yes (Death, Hospitalization, Other)
  Sender: FDA-Public Use
  Company Number: US-JNJFOC-20040903627

PATIENT
  Age: 22 Year
  Sex: Male

DRUGS (3)
  1. ACETAMINOPHEN (ACETAPMINOPHEN) [Suspect]
     Indication: SUICIDE ATTEMPT
  2. OXCARBAZEPINE (OXCARBAZEPINE) [Suspect]
     Indication: SUICIDE ATTEMPT
  3. MIRTAZAPINE [Suspect]
     Indication: SUICIDE ATTEMPT

REACTIONS (11)
  - ALANINE AMINOTRANSFERASE INCREASED [None]
  - AMMONIA INCREASED [None]
  - ASPARTATE AMINOTRANSFERASE INCREASED [None]
  - COMA [None]
  - DEPRESSED LEVEL OF CONSCIOUSNESS [None]
  - INTERNATIONAL NORMALISED RATIO INCREASED [None]
  - LACTIC ACIDOSIS [None]
  - LETHARGY [None]
  - MULTIPLE DRUG OVERDOSE [None]
  - PROTHROMBIN TIME PROLONGED [None]
  - TACHYCARDIA [None]
